FAERS Safety Report 9385501 (Version 4)
Quarter: 2014Q2

REPORT INFORMATION
  Report Type: Spontaneous
  Country: US (occurrence: US)
  Receive Date: 20130705
  Receipt Date: 20140617
  Transmission Date: 20141212
  Serious: Yes (Death, Hospitalization)
  Sender: FDA-Public Use
  Company Number: US-GLAXOSMITHKLINE-A1030320A

PATIENT
  Sex: Female

DRUGS (1)
  1. AVANDIA [Suspect]
     Indication: DIABETES MELLITUS
     Dosage: 4MG UNKNOWN
     Route: 048
     Dates: start: 2001, end: 2007

REACTIONS (5)
  - Acute myocardial infarction [Fatal]
  - Cardiac failure congestive [Unknown]
  - Acute coronary syndrome [Unknown]
  - Pleural effusion [Unknown]
  - Coronary artery disease [Fatal]
